FAERS Safety Report 10045373 (Version 1)
Quarter: 2014Q1

REPORT INFORMATION
  Report Type: Spontaneous
  Country: US (occurrence: None)
  Receive Date: 20140306
  Receipt Date: 20140306
  Transmission Date: 20141002
  Serious: Yes (Hospitalization, Other)
  Sender: FDA-Public Use
  Company Number: 163-21880-13050104

PATIENT
  Age: 69 Year
  Sex: Male
  Weight: 90.27 kg

DRUGS (26)
  1. REVLIMID [Suspect]
     Indication: MYELODYSPLASTIC SYNDROME
     Route: 048
     Dates: start: 20070111
  2. CELEBREX (CELECOXIB) (CAPSULES) [Concomitant]
  3. SOMA (CARISOPRODOL) (TABLETS) [Concomitant]
  4. LANTUS (INSULIN GLARGINE) (INJECTION) [Concomitant]
  5. HUMALOG (INSULIN LISPRO) (INJECTION) [Concomitant]
  6. COUMADIN (WARFARIN SODIUM) (TABLETS) [Concomitant]
  7. ASPIRIN (ACETYLSALICYLIC ACID) (ENTERIC-COATED TABLET) [Concomitant]
  8. NITROGLYCERINE (GLYCERYL TRINITRATE) (CAPSULES) [Concomitant]
  9. MULTIVITAMINS (MULTIVITAMINS) (CAPSULES) [Concomitant]
  10. FLOMAX (TAMSULOSIN) (CAPSULES) [Concomitant]
  11. NEURONTIN (GABAPENTIN) (CAPSULES) [Concomitant]
  12. MARINOL (DRONABINOL) (CAPSULES) [Concomitant]
  13. MORPHINE SULFATE (MORPHINE SULFATE) (TABLETS) [Concomitant]
  14. LAMISIL (TERBINAFINE HYDROCHLORIDE) (TABLETS) [Concomitant]
  15. PRILOSEC (OMEPRAZOLE) (CAPSULES) [Concomitant]
  16. MACRODANTIN (NITROFURANTOIN) (CAPSULES) [Concomitant]
  17. NORCO (VICODIN) (TABLETS) [Concomitant]
  18. PROSCAR (FINASTERIDE) (TABLETS) [Concomitant]
  19. DRONABINOL (DRONABINOL) (CAPSULES) [Concomitant]
  20. IMDUR (ISOSORBIDE MONONITRATE) (TABLETS) [Concomitant]
  21. COREG (CARVEDILOL) (TABLETS) [Concomitant]
  22. PRINIVIL (LISINOPRIL) (TABLETS) [Concomitant]
  23. TERBINAFINE (TERBINAFINE) [Concomitant]
  24. BUMETANIDE (BUMETANIDE) (TABLETS) [Concomitant]
  25. FINASTERIDE (FINASTERIDE) [Concomitant]
  26. POTASSIUM CHLORIDE (POTASSIUM CHLORIDE) [Concomitant]

REACTIONS (8)
  - Cerebrovascular accident [None]
  - Anaemia [None]
  - Atrial fibrillation [None]
  - Septic arthritis staphylococcal [None]
  - Urinary tract infection [None]
  - Necrotising fasciitis [None]
  - Hyperbilirubinaemia [None]
  - Hypoaesthesia [None]
